FAERS Safety Report 8785651 (Version 1)
Quarter: 2012Q4

REPORT INFORMATION
  Report Type: 
  Country: US (occurrence: US)
  Receive Date: 20120914
  Receipt Date: 20120914
  Transmission Date: 20130627
  Serious: Yes (Other)
  Sender: FDA-Public Use
  Company Number: US-BAYER-2012-093440

PATIENT
  Sex: Female

DRUGS (1)
  1. MIRENA [Suspect]
     Indication: CONTRACEPTION
     Dosage: 20 mcg/24hr, CONT
     Route: 015
     Dates: start: 200704

REACTIONS (10)
  - Major depression [None]
  - Major depression [None]
  - Depression [None]
  - Weight increased [None]
  - Oedema peripheral [None]
  - Blood pressure increased [None]
  - Headache [None]
  - Abdominal pain upper [None]
  - Adnexa uteri pain [None]
  - No adverse event [None]
